FAERS Safety Report 12466429 (Version 1)
Quarter: 2016Q2

REPORT INFORMATION
  Report Type: Spontaneous
  Country: US (occurrence: US)
  Receive Date: 20160615
  Receipt Date: 20160615
  Transmission Date: 20160815
  Serious: Yes (Other)
  Sender: FDA-Public Use
  Company Number: US-AMGEN-USASL2016074065

PATIENT
  Age: 58 Year
  Sex: Female
  Weight: 81.6 kg

DRUGS (2)
  1. REPATHA [Suspect]
     Active Substance: EVOLOCUMAB
     Indication: HYPERCHOLESTEROLAEMIA
     Dosage: UNK
     Route: 065
     Dates: start: 20151114
  2. JUXTAPID [Suspect]
     Active Substance: LOMITAPIDE MESYLATE
     Indication: TYPE IIA HYPERLIPIDAEMIA
     Dosage: 5 MG, QD
     Route: 048
     Dates: start: 20130812

REACTIONS (8)
  - Angina pectoris [Recovered/Resolved]
  - Flatulence [Not Recovered/Not Resolved]
  - Lipoprotein (a) increased [Not Recovered/Not Resolved]
  - Drug effect decreased [Unknown]
  - Deep vein thrombosis [Unknown]
  - Low density lipoprotein decreased [Not Recovered/Not Resolved]
  - Diarrhoea [Unknown]
  - Abdominal pain upper [Unknown]

NARRATIVE: CASE EVENT DATE: 2015
